FAERS Safety Report 5914492-X (Version None)
Quarter: 2008Q4

REPORT INFORMATION
  Report Type: 
  Country: None (occurrence: None)
  Receive Date: 20081008
  Receipt Date: 20080929
  Transmission Date: 20090506
  Serious: Yes (Death, Hospitalization)
  Sender: FDA-Public Use
  Company Number: GXKR2008SE09451

PATIENT
  Age: 89 Year
  Sex: Male

DRUGS (8)
  1. RIFAMPICIN [Suspect]
     Indication: INFECTION
     Dosage: ORAL
     Route: 048
     Dates: start: 20080505, end: 20080724
  2. RIFAMPICIN [Suspect]
     Indication: INFECTION PARASITIC
     Dosage: ORAL
     Route: 048
     Dates: start: 20080505, end: 20080724
  3. CIPROFLOXACIN HYDROCHLORIDE [Suspect]
     Indication: INFECTION
     Dosage: ORAL
     Route: 048
     Dates: start: 20080505, end: 20080724
  4. CIPROFLOXACIN HYDROCHLORIDE [Suspect]
     Indication: INFECTION PARASITIC
     Dosage: ORAL
     Route: 048
     Dates: start: 20080505, end: 20080724
  5. OMEPRAZOLE [Concomitant]
  6. BETOLVEX /SCH/ (CYANOCOBALAMIN) FILM-COATED TABLET, 1MG [Concomitant]
  7. DEXOFEN (DEXTROPROPOXYPHENE NAPSILATE) TABLET [Concomitant]
  8. HERACILLIN (FLUCLOXACILLIN SODIUM) [Concomitant]

REACTIONS (14)
  - ACIDOSIS [None]
  - ANOREXIA [None]
  - ASTHENIA [None]
  - CACHEXIA [None]
  - DRY MOUTH [None]
  - DYSPHAGIA [None]
  - HYPOTHERMIA [None]
  - HYPOTONIA [None]
  - PLEURAL EFFUSION [None]
  - PULMONARY OEDEMA [None]
  - RENAL FAILURE [None]
  - RESPIRATORY DEPRESSION [None]
  - TRANSAMINASES INCREASED [None]
  - WEIGHT DECREASED [None]
